FAERS Safety Report 6031924-X (Version None)
Quarter: 2008Q4

REPORT INFORMATION
  Report Type: 
  Country: None (occurrence: None)
  Receive Date: 20081224
  Receipt Date: 20080909
  Transmission Date: 20090506
  Serious: No
  Sender: FDA-Public Use
  Company Number: 2008PV036661

PATIENT
  Age: 59 Year
  Sex: Female

DRUGS (3)
  1. SYMLIN [Suspect]
     Indication: TYPE 1 DIABETES MELLITUS
     Dosage: 15 MCG; X1; SC
     Route: 058
  2. SYMLIN [Suspect]
     Indication: TYPE 1 DIABETES MELLITUS
     Dosage: 60 MCG; TID; SC
     Route: 058
     Dates: start: 20020101, end: 20080908
  3. HUMALOG [Concomitant]

REACTIONS (4)
  - BLOOD GLUCOSE DECREASED [None]
  - BLOOD GLUCOSE INCREASED [None]
  - DRUG PRESCRIBING ERROR [None]
  - GLYCOSYLATED HAEMOGLOBIN INCREASED [None]
